FAERS Safety Report 14928969 (Version 3)
Quarter: 2018Q2

REPORT INFORMATION
  Report Type: Report from Study
  Country: JP (occurrence: JP)
  Receive Date: 20180523
  Receipt Date: 20180613
  Transmission Date: 20180711
  Serious: Yes (Life-Threatening, Hospitalization, Other)
  Sender: FDA-Public Use
  Company Number: JP-009507513-1805JPN001172J

PATIENT
  Age: 64 Year
  Sex: Male
  Weight: 82 kg

DRUGS (1)
  1. KEYTRUDA [Suspect]
     Active Substance: PEMBROLIZUMAB
     Indication: TRANSITIONAL CELL CARCINOMA
     Dosage: 200 MG, Q3W
     Route: 041
     Dates: start: 20180308, end: 20180405

REACTIONS (1)
  - Subarachnoid haemorrhage [Recovering/Resolving]

NARRATIVE: CASE EVENT DATE: 20180426
